FAERS Safety Report 8016193-3 (Version None)
Quarter: 2011Q4

REPORT INFORMATION
  Report Type: 
  Country: None (occurrence: None)
  Receive Date: 20111230
  Receipt Date: 20111226
  Transmission Date: 20120403
  Serious: Yes (Death, Hospitalization)
  Sender: FDA-Public Use
  Company Number: CA-GENZYME-THYM-1003043

PATIENT
  Sex: Female
  Weight: 98 kg

DRUGS (6)
  1. CYCLOSPORINE [Concomitant]
     Indication: PRODUCT USED FOR UNKNOWN INDICATION
     Dosage: UNK
  2. CAMPATH [Suspect]
     Indication: GRAFT VERSUS HOST DISEASE
     Dosage: UNK
  3. GANCICLOVIR [Concomitant]
     Indication: PRODUCT USED FOR UNKNOWN INDICATION
  4. THYMOGLOBULIN [Suspect]
     Dosage: 2 MG/KG, UNK
     Route: 042
     Dates: start: 20110829, end: 20110829
  5. THYMOGLOBULIN [Suspect]
     Indication: PROPHYLAXIS AGAINST GRAFT VERSUS HOST DISEASE
     Dosage: .5 MG/KG, UNK
     Route: 042
     Dates: start: 20110828, end: 20110828
  6. THYMOGLOBULIN [Suspect]
     Dosage: 2 MG/KG, UNK
     Route: 042
     Dates: start: 20110901, end: 20110901

REACTIONS (3)
  - CLOSTRIDIAL INFECTION [None]
  - THERAPEUTIC RESPONSE DECREASED [None]
  - GRAFT VERSUS HOST DISEASE IN INTESTINE [None]
